FAERS Safety Report 18332498 (Version 1)
Quarter: 2020Q3

REPORT INFORMATION
  Report Type: Spontaneous
  Country: JP (occurrence: JP)
  Receive Date: 20200930
  Receipt Date: 20200930
  Transmission Date: 20201103
  Serious: Yes (Death, Other)
  Sender: FDA-Public Use
  Company Number: JP-BRISTOL-MYERS SQUIBB COMPANY-BMS-2019-126821

PATIENT
  Age: 66 Year
  Sex: Female
  Weight: 52.9 kg

DRUGS (3)
  1. OPDIVO [Suspect]
     Active Substance: NIVOLUMAB
     Indication: METASTATIC RENAL CELL CARCINOMA
     Dosage: 158 MG(22/02/2017,08/03,22/03,07/04,26/04,12/05)
     Route: 041
     Dates: start: 20170222, end: 20170512
  2. OPDIVO [Suspect]
     Active Substance: NIVOLUMAB
     Dosage: 156 MG(23/06,07/07,21/07,04/08)
     Route: 041
     Dates: start: 20170623, end: 20170804
  3. OPDIVO [Suspect]
     Active Substance: NIVOLUMAB
     Dosage: 153 MG(26/05,09/06)
     Route: 041
     Dates: start: 20170526, end: 20170609

REACTIONS (1)
  - Death [Fatal]

NARRATIVE: CASE EVENT DATE: 20181124
